FAERS Safety Report 19778515 (Version 1)
Quarter: 2021Q3

REPORT INFORMATION
  Report Type: Spontaneous
  Country: US (occurrence: US)
  Receive Date: 20210831
  Receipt Date: 20210831
  Transmission Date: 20211014
  Serious: No
  Sender: FDA-Public Use
  Company Number: None

PATIENT
  Age: 29 Year
  Sex: Female
  Weight: 89.5 kg

DRUGS (1)
  1. BUPRENORPHINE /NALOXONE [Suspect]
     Active Substance: BUPRENORPHINE\NALOXONE
     Indication: DRUG ABUSE
     Dosage: ?          OTHER DOSE:8?2MG;?
     Route: 060
     Dates: start: 20190122

REACTIONS (1)
  - Drug dependence [None]

NARRATIVE: CASE EVENT DATE: 20210608
